FAERS Safety Report 22020080 (Version 1)
Quarter: 2023Q1

REPORT INFORMATION
  Report Type: Report from Study
  Country: DE (occurrence: DE)
  Receive Date: 20230222
  Receipt Date: 20230222
  Transmission Date: 20230418
  Serious: Yes (Hospitalization, Other)
  Sender: FDA-Public Use
  Company Number: DE-002147023-NVSC2023DE036319

PATIENT
  Sex: Female
  Weight: 110 kg

DRUGS (1)
  1. COSENTYX [Suspect]
     Active Substance: SECUKINUMAB
     Indication: Psoriasis
     Dosage: 300 MG
     Route: 058
     Dates: start: 20190408

REACTIONS (2)
  - Hyperglycaemia [Recovered/Resolved with Sequelae]
  - Type 2 diabetes mellitus [Unknown]

NARRATIVE: CASE EVENT DATE: 20200301
